FAERS Safety Report 24934682 (Version 1)
Quarter: 2025Q1

REPORT INFORMATION
  Report Type: Report from Study
  Country: MY (occurrence: MY)
  Receive Date: 20250206
  Receipt Date: 20250206
  Transmission Date: 20250409
  Serious: No
  Sender: EXELIXIS
  Company Number: MY-IPSEN Group, Research and Development-2024-21407

PATIENT
  Age: 57 Year
  Sex: Female
  Weight: 51 kg

DRUGS (5)
  1. CABOMETYX [Suspect]
     Active Substance: CABOZANTINIB S-MALATE
     Indication: Renal cell carcinoma
     Dosage: 40 MG, QD
     Route: 048
     Dates: start: 20240423, end: 20241016
  2. MONTELUKAST [Concomitant]
     Active Substance: MONTELUKAST
     Indication: Cough
     Dosage: 10 MG, QD (10 MG AT NIGHT, EVERY 1 DAYS)
  3. DESLORATADINE [Concomitant]
     Active Substance: DESLORATADINE
     Indication: Cough
     Dosage: 5 MG, QD (5 MG AT NIGHT, EVERY 1 DAYS)
  4. FLUTIFORM [Concomitant]
     Active Substance: FLUTIFORM
     Indication: Cough
     Dosage: UNK, BID (MDI 125/5 2 PUFFS, 2/DAYS)
  5. OMNARIS [Concomitant]
     Active Substance: CICLESONIDE
     Indication: Cough
     Dosage: UNK, QD (2 PUFFS, EVERY 1 DAYS)

REACTIONS (5)
  - Sensation of foreign body [Recovering/Resolving]
  - Skin discolouration [Recovering/Resolving]
  - Hyperkeratosis [Recovering/Resolving]
  - Dry skin [Recovering/Resolving]
  - Pain in extremity [Recovering/Resolving]

NARRATIVE: CASE EVENT DATE: 20240701
